FAERS Safety Report 11095921 (Version 1)
Quarter: 2015Q2

REPORT INFORMATION
  Report Type: Spontaneous
  Country: FR (occurrence: FR)
  Receive Date: 20150507
  Receipt Date: 20150507
  Transmission Date: 20150821
  Serious: Yes (Other)
  Sender: FDA-Public Use
  Company Number: FR-BEH-2014044549

PATIENT
  Age: 67 Year
  Sex: Male

DRUGS (4)
  1. FRESH FROZEN PLASMA [Concomitant]
     Active Substance: HUMAN PLASMA
     Indication: SHOCK HAEMORRHAGIC
     Dosage: 4
  2. PACKED RED BLOOD CELLS [Concomitant]
     Active Substance: HUMAN RED BLOOD CELL
     Indication: SHOCK HAEMORRHAGIC
     Dosage: 4
  3. PROTHROMBIN COMPLEX CONCENTRATE NOS [Suspect]
     Active Substance: COAGULATION FACTOR IX HUMAN\COAGULATION FACTOR VII HUMAN\COAGULATION FACTOR X HUMAN\PROTHROMBIN
     Indication: SHOCK HAEMORRHAGIC
  4. NOREPINEPHRINE [Concomitant]
     Active Substance: NOREPINEPHRINE\NOREPINEPHRINE BITARTRATE
     Indication: SHOCK HAEMORRHAGIC

REACTIONS (2)
  - Shock haemorrhagic [Recovered/Resolved]
  - Drug ineffective for unapproved indication [Recovered/Resolved]
